FAERS Safety Report 19092579 (Version 2)
Quarter: 2021Q2

REPORT INFORMATION
  Report Type: Spontaneous
  Country: US (occurrence: US)
  Receive Date: 20210405
  Receipt Date: 20210614
  Transmission Date: 20210717
  Serious: No
  Sender: FDA-Public Use
  Company Number: US-GLAXOSMITHKLINE-US2021AMR071958

PATIENT

DRUGS (1)
  1. WELLBUTRIN XL [Suspect]
     Active Substance: BUPROPION HYDROCHLORIDE
     Indication: PRODUCT USED FOR UNKNOWN INDICATION
     Dosage: 300 MG, STARTED APPROX 3 YEARS AGO
     Route: 048

REACTIONS (13)
  - Dysphonia [Unknown]
  - Dry throat [Unknown]
  - Tongue disorder [Unknown]
  - Tongue erythema [Unknown]
  - Influenza like illness [Unknown]
  - Ageusia [Unknown]
  - Product quality issue [Unknown]
  - Sensation of foreign body [Unknown]
  - Dry mouth [Unknown]
  - Swollen tongue [Unknown]
  - Dry eye [Unknown]
  - Asthenia [Unknown]
  - Tongue discolouration [Unknown]

NARRATIVE: CASE EVENT DATE: 20210202
